FAERS Safety Report 9166911 (Version 1)
Quarter: 2013Q1

REPORT INFORMATION
  Report Type: Spontaneous
  Country: IT (occurrence: IT)
  Receive Date: 20130318
  Receipt Date: 20130318
  Transmission Date: 20140127
  Serious: Yes (Other)
  Sender: FDA-Public Use
  Company Number: PHHY2013IT024558

PATIENT
  Age: 48 Year
  Sex: Male

DRUGS (4)
  1. PERGOLIDE [Suspect]
     Indication: PARKINSON^S DISEASE
     Dosage: 3 MG, UNK
  2. LEVODOPA+CARBIDOPA [Suspect]
     Indication: PARKINSON^S DISEASE
     Dosage: 1000/250 MG/DAY
  3. LEVODOPA [Suspect]
     Indication: PARKINSON^S DISEASE
     Dosage: 2000 MG, UNK
  4. LEVODOPA [Suspect]
     Dosage: 600 MG, UNK

REACTIONS (7)
  - Paraphilia [Recovered/Resolved]
  - Dopamine dysregulation syndrome [Recovered/Resolved]
  - Pathological gambling [Recovered/Resolved]
  - Hypersexuality [Recovered/Resolved]
  - Fetishism [Recovered/Resolved]
  - Dyskinesia [Recovered/Resolved]
  - Dysphoria [Recovered/Resolved]
